FAERS Safety Report 9187657 (Version 2)
Quarter: 2013Q2

REPORT INFORMATION
  Report Type: Spontaneous
  Country: FR (occurrence: FR)
  Receive Date: 20130325
  Receipt Date: 20130521
  Transmission Date: 20140414
  Serious: Yes (Hospitalization)
  Sender: FDA-Public Use
  Company Number: FR-AMGEN-FRASP2013018960

PATIENT
  Age: 75 Year
  Sex: Male
  Weight: 62 kg

DRUGS (2)
  1. XGEVA [Suspect]
     Indication: PRODUCT USED FOR UNKNOWN INDICATION
     Dosage: 120 MG, Q4WK
     Route: 058
  2. RETACRIT [Suspect]
     Indication: ANAEMIA
     Dosage: 2000 UNK, Q4WK
     Route: 058

REACTIONS (1)
  - Supraventricular tachycardia [Recovered/Resolved]
